FAERS Safety Report 4432374-X (Version None)
Quarter: 2004Q3

REPORT INFORMATION
  Report Type: 
  Country: None (occurrence: None)
  Receive Date: 20040820
  Receipt Date: 20040804
  Transmission Date: 20050211
  Serious: Yes (Life-Threatening)
  Sender: FDA-Public Use
  Company Number: 2004IC000375

PATIENT
  Age: 78 Year
  Sex: Male

DRUGS (8)
  1. FLUOROURACIL [Suspect]
     Indication: OESOPHAGEAL CARCINOMA
     Dosage: 1070 MG;UNKNOWN; INTRAVENOUS
     Route: 042
     Dates: start: 20040708, end: 20040712
  2. AQUPLA (NEDAPLATIN) [Suspect]
     Indication: OESOPHAGEAL CARCINOMA
     Dosage: 27 MG;UNKNOWN;INTRAVENOUS
     Route: 042
     Dates: start: 20040708, end: 20040712
  3. LASIX [Suspect]
     Indication: POLYURIA
     Dosage: 10 MG;UNKNOWN; ORAL
     Route: 048
     Dates: start: 20040708, end: 20040712
  4. NORMONAL (TRIPAMIDE) [Suspect]
     Indication: HYPERTENSION
     Dosage: 15 MG;UNKNOWN;ORAL
     Route: 048
     Dates: end: 20040713
  5. ANPEC (VERAPAMIL HYDROCHLORIDE) [Suspect]
     Indication: CANCER PAIN
     Dosage: 30 MG;UNKNOWN;PARENTERAL
     Route: 051
     Dates: start: 20040701
  6. HALOPERIDOL [Suspect]
     Indication: ANXIETY
     Dosage: 5 MG; UNKNOWN; INTRAVENOUS
     Route: 042
     Dates: start: 20040712, end: 20040712
  7. SIGMART [Concomitant]
  8. CASANMIL [Concomitant]

REACTIONS (5)
  - ANGINA PECTORIS [None]
  - ANXIETY [None]
  - BLOOD POTASSIUM DECREASED [None]
  - CARDIO-RESPIRATORY ARREST [None]
  - VENTRICULAR ARRHYTHMIA [None]
